FAERS Safety Report 12700159 (Version 5)
Quarter: 2017Q1

REPORT INFORMATION
  Report Type: Spontaneous
  Country: CA (occurrence: CA)
  Receive Date: 20160830
  Receipt Date: 20170320
  Transmission Date: 20170428
  Serious: Yes (Other)
  Sender: FDA-Public Use
  Company Number: CA-PFIZER INC-2016138475

PATIENT
  Age: 46 Year
  Sex: Female
  Weight: 121.7 kg

DRUGS (15)
  1. ENBREL [Suspect]
     Active Substance: ETANERCEPT
     Indication: RHEUMATOID ARTHRITIS
     Dosage: 50 MG, WEEKLY
     Route: 058
     Dates: end: 2016
  2. BISOPROLOL [Concomitant]
     Active Substance: BISOPROLOL
     Dosage: 100 MG, 1X/DAY
     Dates: start: 201601
  3. CANDESARTAN [Concomitant]
     Active Substance: CANDESARTAN
     Dosage: 12.5 MG, DAILY
     Dates: start: 201601
  4. PREDNISONE. [Concomitant]
     Active Substance: PREDNISONE
     Dosage: 20 MG, SINGLE (ONCE)
     Dates: start: 20170228
  5. PROXETINE [Concomitant]
     Dosage: 30 MG, DAILY
     Dates: start: 1997
  6. VITAMIN D [Concomitant]
     Active Substance: CHOLECALCIFEROL
     Dosage: UNK, 1X/DAY
  7. METHOTREXATE SODIUM. [Suspect]
     Active Substance: METHOTREXATE SODIUM
     Dosage: 12.5 MG, WEEKLY
     Route: 058
  8. PANTOPRAZOLE [Concomitant]
     Active Substance: PANTOPRAZOLE SODIUM
     Dosage: 40 MG, 2X/DAY
  9. DEXAMETHASONE. [Concomitant]
     Active Substance: DEXAMETHASONE
     Dosage: 4 MG, 1X/DAY
     Dates: end: 20160227
  10. METHOTREXATE SODIUM. [Suspect]
     Active Substance: METHOTREXATE SODIUM
     Indication: RHEUMATOID ARTHRITIS
     Dosage: 20 MG, WEEKLY (TUESDAY)
     Route: 058
  11. APO-SUCRALFATE [Concomitant]
     Dosage: 1 G, 2X/DAY
     Dates: start: 20161221
  12. FOLIC ACID. [Concomitant]
     Active Substance: FOLIC ACID
     Dosage: UNK, 1X/DAY
  13. XELJANZ [Concomitant]
     Active Substance: TOFACITINIB CITRATE
     Dosage: 5 MG, 2X/DAY
     Route: 048
     Dates: end: 20170227
  14. EMTEC [Concomitant]
     Dosage: 30 MG, AS NEEDED (UP TO 6X/DAY)
     Dates: start: 2007
  15. TEMAZEPAM. [Concomitant]
     Active Substance: TEMAZEPAM
     Dosage: 15-30 MG, AS NEEDED
     Dates: start: 2007

REACTIONS (6)
  - Liver injury [Unknown]
  - Lymphadenopathy [Unknown]
  - Liver disorder [Unknown]
  - Condition aggravated [Unknown]
  - Rash [Unknown]
  - Sjogren^s syndrome [Unknown]
